FAERS Safety Report 5342298-1 (Version None)
Quarter: 2007Q2

REPORT INFORMATION
  Report Type: 
  Country: None (occurrence: None)
  Receive Date: 20070416
  Receipt Date: 20070312
  Transmission Date: 20071010
  Serious: No
  Sender: FDA-Public Use
  Company Number: 2007SP000877

PATIENT
  Age: 86 Year
  Sex: Male
  Weight: 94.8018 kg

DRUGS (5)
  1. LUNESTA [Suspect]
     Indication: SLEEP APNOEA SYNDROME
     Dosage: 3 MG;ORAL
     Route: 048
     Dates: start: 20070310
  2. ANTIHYPERTENSIVES [Concomitant]
  3. HYTRIN [Concomitant]
  4. ATORVASTATIN CALCIUM [Concomitant]
  5. AGGRENOX [Concomitant]

REACTIONS (1)
  - MIDDLE INSOMNIA [None]
